FAERS Safety Report 6642688-0 (Version None)
Quarter: 2010Q1

REPORT INFORMATION
  Report Type: 
  Country: None (occurrence: None)
  Receive Date: 20100319
  Receipt Date: 20100310
  Transmission Date: 20100710
  Serious: Yes (Life-Threatening)
  Sender: FDA-Public Use
  Company Number: JP-ABBOTT-08P-087-0467984-00

PATIENT
  Sex: Male

DRUGS (24)
  1. KALETRA [Suspect]
     Indication: HIV INFECTION
     Dosage: 200MG/50MG TABLETS, 4 TABLETS DAILY
     Route: 048
     Dates: start: 20080123
  2. CYCLOSPORINE [Interacting]
     Indication: GRAFT VERSUS HOST DISEASE
     Route: 042
     Dates: start: 20080124, end: 20080214
  3. CYCLOSPORINE [Interacting]
     Indication: PROPHYLAXIS
  4. EMTRICITABINE W/TENOFOVIR [Interacting]
     Indication: HIV INFECTION
     Route: 048
     Dates: start: 20071020, end: 20080518
  5. EFAVIRENZ [Concomitant]
     Indication: HIV INFECTION
     Dosage: 600 MG DAILY
     Route: 048
     Dates: start: 20071020, end: 20080122
  6. AMPHOTERICIN B [Concomitant]
     Indication: FUNGAL INFECTION
     Route: 055
     Dates: start: 20080111, end: 20080124
  7. AMPHOTERICIN B [Concomitant]
     Indication: PROPHYLAXIS
  8. METHOTREXATE [Concomitant]
     Indication: ACUTE MYELOID LEUKAEMIA
     Route: 028
     Dates: start: 20080111, end: 20080111
  9. CYTARABINE [Concomitant]
     Indication: ACUTE MYELOID LEUKAEMIA
     Route: 028
     Dates: start: 20080111, end: 20080111
  10. DEXAMETHASONE SODIUM PHOSPHATE [Concomitant]
     Indication: ACUTE MYELOID LEUKAEMIA
     Route: 028
     Dates: start: 20080111, end: 20080111
  11. VANCOMYCIN [Concomitant]
     Indication: GASTROINTESTINAL INFECTION
     Route: 048
     Dates: start: 20080118, end: 20080227
  12. VANCOMYCIN [Concomitant]
     Indication: PROPHYLAXIS
  13. ACYCLOVIR SODIUM [Concomitant]
     Indication: HERPES VIRUS INFECTION
     Dosage: 5 TABLETS DAILY
     Route: 048
     Dates: start: 20080118, end: 20080227
  14. LEVOFLOXACIN [Concomitant]
     Indication: BACTERIAL INFECTION
     Route: 048
     Dates: start: 20080117, end: 20080305
  15. LEVOFLOXACIN [Concomitant]
     Indication: PROPHYLAXIS
  16. ETOPOSIDE [Concomitant]
     Indication: ACUTE MYELOID LEUKAEMIA
     Route: 042
     Dates: start: 20080119, end: 20080119
  17. CYCLOPHOSPHAMIDE HYDRATE [Concomitant]
     Indication: ACUTE MYELOID LEUKAEMIA
     Route: 042
     Dates: start: 20080119, end: 20080119
  18. METHOTREXATE [Concomitant]
     Indication: GRAFT VERSUS HOST DISEASE
     Route: 042
     Dates: start: 20080126, end: 20080205
  19. METHOTREXATE [Concomitant]
     Indication: PROPHYLAXIS
  20. DALTEPARIN SODIUM [Concomitant]
     Indication: GRAFT VERSUS HOST DISEASE
     Route: 042
     Dates: start: 20080122, end: 20080124
  21. DALTEPARIN SODIUM [Concomitant]
     Indication: PROPHYLAXIS
  22. LAMIVUDINE [Concomitant]
     Indication: HIV INFECTION
     Route: 048
     Dates: start: 20080519, end: 20081211
  23. ABACAVIR [Concomitant]
     Indication: HIV INFECTION
     Route: 048
     Dates: start: 20080519, end: 20081211
  24. EPZICOM [Concomitant]
     Indication: DRUG USE FOR UNKNOWN INDICATION
     Route: 048
     Dates: start: 20081212

REACTIONS (5)
  - DRUG INTERACTION [None]
  - FEBRILE NEUTROPENIA [None]
  - GRAFT VERSUS HOST DISEASE [None]
  - PANCYTOPENIA [None]
  - RENAL IMPAIRMENT [None]
